FAERS Safety Report 7681205-3 (Version None)
Quarter: 2011Q3

REPORT INFORMATION
  Report Type: 
  Country: None (occurrence: None)
  Receive Date: 20110812
  Receipt Date: 20110802
  Transmission Date: 20111222
  Serious: Yes (Hospitalization)
  Sender: FDA-Public Use
  Company Number: US-ELI_LILLY_AND_COMPANY-US201108002454

PATIENT
  Sex: Male

DRUGS (5)
  1. ACTOS [Concomitant]
     Dosage: UNK
  2. LISINOPRIL [Concomitant]
     Dosage: 20 MG, UNK
  3. HUMULIN 70/30 [Suspect]
     Dosage: 35 U, EACH EVENING
     Dates: start: 19910101
  4. HUMULIN 70/30 [Suspect]
     Indication: TYPE 1 DIABETES MELLITUS
     Dosage: 40 U, EACH MORNING
     Dates: start: 19910101
  5. LOVASTATIN [Concomitant]
     Dosage: 40 MG, UNK

REACTIONS (7)
  - KNEE ARTHROPLASTY [None]
  - PERIARTHRITIS [None]
  - KNEE OPERATION [None]
  - ARTHROPATHY [None]
  - SCAR EXCISION [None]
  - ARTHRALGIA [None]
  - NEUROPATHY PERIPHERAL [None]
